FAERS Safety Report 5497475-6 (Version None)
Quarter: 2007Q4

REPORT INFORMATION
  Report Type: 
  Country: None (occurrence: None)
  Receive Date: 20071025
  Receipt Date: 20061121
  Transmission Date: 20080405
  Serious: No
  Sender: FDA-Public Use
  Company Number: A0628288A

PATIENT
  Age: 17 Year
  Sex: Female

DRUGS (3)
  1. ADVAIR DISKUS 100/50 [Suspect]
     Indication: ASTHMA
     Route: 055
  2. ALLEGRA [Concomitant]
  3. NIZORAL [Concomitant]

REACTIONS (2)
  - CARDIAC FLUTTER [None]
  - EXPIRED DRUG ADMINISTERED [None]
